FAERS Safety Report 6694561-X (Version None)
Quarter: 2010Q2

REPORT INFORMATION
  Report Type: 
  Country: None (occurrence: None)
  Receive Date: 20100423
  Receipt Date: 20100421
  Transmission Date: 20101027
  Serious: Yes (Hospitalization, Other)
  Sender: FDA-Public Use
  Company Number: US-MERCK-1001USA00053

PATIENT
  Age: 65 Year
  Sex: Female
  Weight: 70 kg

DRUGS (3)
  1. FOSAMAX [Suspect]
     Indication: OSTEOPOROSIS PROPHYLAXIS
     Route: 048
     Dates: start: 19960101, end: 20080601
  2. FOSAMAX [Suspect]
     Route: 048
     Dates: start: 20001001, end: 20021001
  3. FOSAMAX [Suspect]
     Route: 048
     Dates: start: 20021031

REACTIONS (27)
  - ABDOMINAL PAIN UPPER [None]
  - ANAPHYLACTIC SHOCK [None]
  - ANXIETY [None]
  - ARTHROPATHY [None]
  - BLOOD CHOLESTEROL INCREASED [None]
  - COLON CANCER [None]
  - DEHYDRATION [None]
  - EPIPHYSEAL DISORDER [None]
  - FEMUR FRACTURE [None]
  - FRACTURE DELAYED UNION [None]
  - HYPERLIPIDAEMIA [None]
  - HYPERSENSITIVITY [None]
  - HYPERTENSION [None]
  - LOW TURNOVER OSTEOPATHY [None]
  - LYMPHADENOPATHY [None]
  - MENISCUS LESION [None]
  - OSTEOPENIA [None]
  - OSTEOPOROSIS [None]
  - PAIN IN EXTREMITY [None]
  - RHEUMATOID ARTHRITIS [None]
  - RHINITIS ALLERGIC [None]
  - ROTATOR CUFF SYNDROME [None]
  - TENDONITIS [None]
  - TOOTH DISORDER [None]
  - URINARY TRACT DISORDER [None]
  - URINARY TRACT INFECTION [None]
  - VULVOVAGINAL DRYNESS [None]
